FAERS Safety Report 25923204 (Version 1)
Quarter: 2025Q4

REPORT INFORMATION
  Report Type: Spontaneous
  Country: CA (occurrence: CA)
  Receive Date: 20251015
  Receipt Date: 20251015
  Transmission Date: 20260117
  Serious: Yes (Other)
  Sender: Haleon PLC
  Company Number: CA-KENVUE-20251002424

PATIENT
  Sex: Male

DRUGS (1)
  1. NICORETTE [Suspect]
     Active Substance: NICOTINE
     Indication: Smoking cessation therapy
     Dosage: 1 DOSAGE FORM (ONE PIECE), ONCE A DAY
     Route: 065
     Dates: start: 20250330

REACTIONS (3)
  - Tooth loss [Unknown]
  - Incorrect product administration duration [Unknown]
  - Tooth disorder [Unknown]

NARRATIVE: CASE EVENT DATE: 20250330
